FAERS Safety Report 7992172-7 (Version None)
Quarter: 2011Q4

REPORT INFORMATION
  Report Type: 
  Country: None (occurrence: None)
  Receive Date: 20111219
  Receipt Date: 20110418
  Transmission Date: 20120403
  Serious: No
  Sender: FDA-Public Use
  Company Number: US-ASTRAZENECA-2011SE22374

PATIENT
  Age: 88 Year
  Sex: Female
  Weight: 88 kg

DRUGS (2)
  1. ATACAND [Concomitant]
  2. CRESTOR [Suspect]
     Route: 048

REACTIONS (3)
  - FATIGUE [None]
  - ASTHENIA [None]
  - GASTROOESOPHAGEAL REFLUX DISEASE [None]
